FAERS Safety Report 19000154 (Version 1)
Quarter: 2021Q1

REPORT INFORMATION
  Report Type: Spontaneous
  Country: IN (occurrence: IN)
  Receive Date: 20210312
  Receipt Date: 20210312
  Transmission Date: 20210420
  Serious: Yes (Other)
  Sender: FDA-Public Use
  Company Number: IN-LUPIN LIMITED-2021-03003

PATIENT
  Age: 25 Year
  Sex: Female

DRUGS (1)
  1. TRIAMCINOLONE [Suspect]
     Active Substance: TRIAMCINOLONE
     Indication: CYSTOID MACULAR OEDEMA
     Dosage: UNK (RECEIVED TWO POSTERIOR SUBTENON INJECTIONS OF 20MG/0.5ML OF TRIAMCINOLONE)
     Route: 050

REACTIONS (2)
  - Glaucoma [Recovered/Resolved]
  - Chorioretinopathy [Recovering/Resolving]
